FAERS Safety Report 5167604-2 (Version None)
Quarter: 2006Q4

REPORT INFORMATION
  Report Type: 
  Country: None (occurrence: None)
  Receive Date: 20060919
  Receipt Date: 20060802
  Transmission Date: 20070319
  Serious: No
  Sender: FDA-Public Use
  Company Number: BDI-008497

PATIENT
  Age: 22 Year
  Sex: Male
  Weight: 63.64 kg

DRUGS (3)
  1. MULTIHANCE [Suspect]
     Indication: HEADACHE
     Dosage: 13 ML ONCE IV
     Route: 042
     Dates: start: 20060802, end: 20060802
  2. MULTIHANCE [Suspect]
     Indication: NUCLEAR MAGNETIC RESONANCE IMAGING BRAIN
     Dosage: 13 ML ONCE IV
     Route: 042
     Dates: start: 20060802, end: 20060802
  3. MULTIHANCE [Suspect]
     Indication: WEIGHT DECREASED
     Dosage: 13 ML ONCE IV
     Route: 042
     Dates: start: 20060802, end: 20060802

REACTIONS (1)
  - HYPERSENSITIVITY [None]
